FAERS Safety Report 26017701 (Version 1)
Quarter: 2025Q4

REPORT INFORMATION
  Report Type: Spontaneous
  Country: US (occurrence: US)
  Receive Date: 20251110
  Receipt Date: 20251110
  Transmission Date: 20260118
  Serious: No
  Sender: BAUSCH AND LOMB
  Company Number: US-BAUSCH-BH-2025-019828

PATIENT
  Age: 31 Year
  Sex: Female

DRUGS (1)
  1. XIFAXAN [Suspect]
     Active Substance: RIFAXIMIN
     Indication: Hepatic encephalopathy
     Dosage: PAST THREE YEARS
     Route: 048
     Dates: end: 202509

REACTIONS (3)
  - Brain fog [Unknown]
  - Therapy interrupted [Unknown]
  - Product prescribing issue [Unknown]

NARRATIVE: CASE EVENT DATE: 20250101
